FAERS Safety Report 5804835-X (Version None)
Quarter: 2008Q3

REPORT INFORMATION
  Report Type: 
  Country: None (occurrence: None)
  Receive Date: 20080709
  Receipt Date: 20080630
  Transmission Date: 20090109
  Serious: Yes (Hospitalization)
  Sender: FDA-Public Use
  Company Number: PHHO2008FR03619

PATIENT
  Sex: Female
  Weight: 48 kg

DRUGS (3)
  1. ERL 080A ERL+TAB [Suspect]
     Indication: RENAL TRANSPLANT
     Dosage: 2160 MG/DAY
     Route: 048
     Dates: start: 20071221
  2. NEORAL [Suspect]
  3. CORTANCYL [Suspect]

REACTIONS (3)
  - COUGH [None]
  - LUNG DISORDER [None]
  - PYREXIA [None]
